FAERS Safety Report 5614753-8 (Version None)
Quarter: 2008Q1

REPORT INFORMATION
  Report Type: 
  Country: None (occurrence: None)
  Receive Date: 20080205
  Receipt Date: 20080128
  Transmission Date: 20080703
  Serious: Yes (Disabling)
  Sender: FDA-Public Use
  Company Number: US-ELI_LILLY_AND_COMPANY-US200801001569

PATIENT
  Sex: Male

DRUGS (7)
  1. HUMALOG [Suspect]
  2. HUMULIN N [Suspect]
  3. ATENOLOL [Concomitant]
  4. NEXIUM [Concomitant]
  5. SYNTHROID [Concomitant]
  6. OXYCONTIN [Concomitant]
  7. NEURONTIN [Concomitant]

REACTIONS (3)
  - FALL [None]
  - NASOPHARYNGITIS [None]
  - SPINAL CORD INJURY [None]
